FAERS Safety Report 8010614-8 (Version None)
Quarter: 2011Q4

REPORT INFORMATION
  Report Type: 
  Country: None (occurrence: None)
  Receive Date: 20111228
  Receipt Date: 20111223
  Transmission Date: 20120403
  Serious: Yes (Other)
  Sender: FDA-Public Use
  Company Number: PHEH2011US012506

PATIENT
  Age: 2 Year
  Sex: Female
  Weight: 11.791 kg

DRUGS (2)
  1. TOBI [Suspect]
     Indication: CYSTIC FIBROSIS
     Dosage: 300 MG, BID IN A CYCLE OF 28 DAYS ON AND 28 DAYS OFF
     Dates: start: 20110802
  2. TOBI [Suspect]
     Indication: NECROTISING ENTEROCOLITIS NEONATAL

REACTIONS (1)
  - UPPER RESPIRATORY TRACT INFECTION [None]
